FAERS Safety Report 6370984-3 (Version None)
Quarter: 2009Q3

REPORT INFORMATION
  Report Type: 
  Country: None (occurrence: None)
  Receive Date: 20090923
  Receipt Date: 20090910
  Transmission Date: 20100115
  Serious: Yes (Hospitalization)
  Sender: FDA-Public Use
  Company Number: FR-CELGENEUS-056-50794-09090897

PATIENT
  Sex: Male
  Weight: 80.5 kg

DRUGS (2)
  1. VIDAZA [Suspect]
     Route: 058
     Dates: start: 20090615, end: 20090807
  2. NEO RECORMON [Suspect]
     Dosage: 60000 UI/ WEEK
     Route: 058
     Dates: start: 20090804

REACTIONS (1)
  - GASTROINTESTINAL INFLAMMATION [None]
